FAERS Safety Report 23649025 (Version 1)
Quarter: 2024Q1

REPORT INFORMATION
  Report Type: Spontaneous
  Country: DE (occurrence: DE)
  Receive Date: 20240319
  Receipt Date: 20240319
  Transmission Date: 20240409
  Serious: Yes (Hospitalization, Other)
  Sender: FDA-Public Use
  Company Number: None

PATIENT
  Sex: Male

DRUGS (4)
  1. TOLTERODINE [Suspect]
     Active Substance: TOLTERODINE
     Indication: Bladder dysfunction
     Dosage: UNKNOWN
     Route: 065
  2. OXYBUTYNIN [Suspect]
     Active Substance: OXYBUTYNIN\OXYBUTYNIN CHLORIDE
     Indication: Product used for unknown indication
     Dosage: UNKNOWN
     Route: 065
  3. MIRABEGRON [Concomitant]
     Active Substance: MIRABEGRON
     Indication: Bladder dysfunction
     Dosage: UNKNOWN
     Route: 065
  4. PREGABALIN [Concomitant]
     Active Substance: PREGABALIN
     Indication: Product used for unknown indication
     Dosage: UNKNOWN
     Route: 065

REACTIONS (7)
  - Anticholinergic syndrome [Unknown]
  - Drug ineffective [Unknown]
  - Muscle rigidity [Unknown]
  - Disturbance in attention [Unknown]
  - Oesophageal obstruction [Unknown]
  - Muscle spasms [Unknown]
  - Presyncope [Unknown]

NARRATIVE: CASE EVENT DATE: 20210501
